FAERS Safety Report 7487814-9 (Version None)
Quarter: 2011Q2

REPORT INFORMATION
  Report Type: 
  Country: None (occurrence: None)
  Receive Date: 20110511
  Receipt Date: 20110106
  Transmission Date: 20111010
  Serious: Yes (Hospitalization, Other)
  Sender: FDA-Public Use
  Company Number: GB-021832

PATIENT
  Age: 79 Year
  Sex: Male
  Weight: 77.3 kg

DRUGS (2)
  1. ENALAPRIL MALEATE [Concomitant]
  2. (CHLORAMBUCIL) [Suspect]
     Indication: CHRONIC LYMPHOCYTIC LEUKAEMIA
     Dosage: 56 MG
     Dates: end: 20101025

REACTIONS (4)
  - MALAISE [None]
  - HAEMOGLOBIN DECREASED [None]
  - LETHARGY [None]
  - NEUTROPENIC INFECTION [None]
